FAERS Safety Report 4853370-4 (Version None)
Quarter: 2005Q4

REPORT INFORMATION
  Report Type: 
  Country: None (occurrence: None)
  Receive Date: 20051214
  Receipt Date: 20050204
  Transmission Date: 20060501
  Serious: Yes (Hospitalization, Other)
  Sender: FDA-Public Use
  Company Number: US-MERCK-0502USA00556

PATIENT
  Age: 76 Year
  Sex: Male
  Weight: 84 kg

DRUGS (3)
  1. VIOXX [Suspect]
     Indication: PAIN
     Route: 048
     Dates: start: 20030210, end: 20041001
  2. DIOVAN [Concomitant]
     Route: 065
     Dates: start: 19980101
  3. ZOCOR [Concomitant]
     Route: 048
     Dates: start: 19980101

REACTIONS (29)
  - ABDOMINAL PAIN LOWER [None]
  - ANGINA PECTORIS [None]
  - ASTHMA [None]
  - ATRIAL FLUTTER [None]
  - BACK PAIN [None]
  - BUNDLE BRANCH BLOCK LEFT [None]
  - CARDIAC FAILURE CONGESTIVE [None]
  - CHRONIC OBSTRUCTIVE PULMONARY DISEASE [None]
  - CONSTIPATION [None]
  - CORONARY ARTERY DISEASE [None]
  - DYSPEPSIA [None]
  - GASTRITIS [None]
  - GASTROOESOPHAGEAL REFLUX DISEASE [None]
  - HAEMOGLOBIN DECREASED [None]
  - HYPONATRAEMIA [None]
  - INSOMNIA [None]
  - LOBAR PNEUMONIA [None]
  - MELAENA [None]
  - MUSCLE SPASMS [None]
  - MYOCARDIAL INFARCTION [None]
  - NEUROPATHY PERIPHERAL [None]
  - OEDEMA [None]
  - OEDEMA PERIPHERAL [None]
  - PAIN IN EXTREMITY [None]
  - PALPITATIONS [None]
  - PRURITUS [None]
  - SUPRAVENTRICULAR TACHYCARDIA [None]
  - ULCER [None]
  - VENTRICULAR EXTRASYSTOLES [None]
